FAERS Safety Report 8595437-3 (Version None)
Quarter: 2012Q3

REPORT INFORMATION
  Report Type: 
  Country: None (occurrence: None)
  Receive Date: 20120815
  Receipt Date: 20120717
  Transmission Date: 20120928
  Serious: No
  Sender: FDA-Public Use
  Company Number: US-BRISTOL-MYERS SQUIBB COMPANY-16775413

PATIENT

DRUGS (4)
  1. GLIPIZIDE [Suspect]
     Route: 065
  2. LANTUS [Suspect]
     Dosage: 1DF=20UNITS LANTUS PARENTERAL 100MG/ML
     Route: 058
  3. ONGLYZA [Suspect]
     Dosage: IN THE MRNG
     Route: 065
  4. METFORMIN HCL [Suspect]

REACTIONS (1)
  - BLOOD GLUCOSE INCREASED [None]
